FAERS Safety Report 9759730 (Version 1)
Quarter: 2013Q4

REPORT INFORMATION
  Report Type: Report from Study
  Country: US (occurrence: US)
  Receive Date: 20131216
  Receipt Date: 20131216
  Transmission Date: 20140711
  Serious: No
  Sender: FDA-Public Use
  Company Number: US-ABBVIE-13P-163-1145226-00

PATIENT
  Sex: Male
  Weight: 58.11 kg

DRUGS (2)
  1. TRILIPIX [Suspect]
     Indication: PRODUCT USED FOR UNKNOWN INDICATION
  2. CRESTOR [Concomitant]
     Indication: PRODUCT USED FOR UNKNOWN INDICATION

REACTIONS (3)
  - Vitamin D decreased [Not Recovered/Not Resolved]
  - Increased appetite [Not Recovered/Not Resolved]
  - Myalgia [Not Recovered/Not Resolved]
